FAERS Safety Report 11148402 (Version 1)
Quarter: 2015Q2

REPORT INFORMATION
  Report Type: Spontaneous
  Country: None (occurrence: None)
  Receive Date: 20150528
  Receipt Date: 20150528
  Transmission Date: 20150821
  Serious: Yes (Hospitalization)
  Sender: FDA-Public Use
  Company Number: None

PATIENT
  Age: 71 Year
  Sex: Female
  Weight: 74.8 kg

DRUGS (12)
  1. ELIQUIS [Concomitant]
     Active Substance: APIXABAN
  2. VALIUM [Concomitant]
     Active Substance: DIAZEPAM
  3. ASPIRIN. [Concomitant]
     Active Substance: ASPIRIN
  4. IMDUR [Concomitant]
     Active Substance: ISOSORBIDE MONONITRATE
  5. ATENOLOL. [Concomitant]
     Active Substance: ATENOLOL
  6. TORSEMIDE. [Concomitant]
     Active Substance: TORSEMIDE
  7. SPIRONOLACTONE. [Concomitant]
     Active Substance: SPIRONOLACTONE
  8. ATORVASTATIN [Concomitant]
     Active Substance: ATORVASTATIN
  9. NEXIUM [Concomitant]
     Active Substance: ESOMEPRAZOLE MAGNESIUM
  10. EFFIENT [Concomitant]
     Active Substance: PRASUGREL HYDROCHLORIDE
  11. NITROGLYCERIN. [Concomitant]
     Active Substance: NITROGLYCERIN
  12. RIVAROXABAN [Suspect]
     Active Substance: RIVAROXABAN
     Indication: ANTICOAGULANT THERAPY
     Route: 048

REACTIONS (3)
  - Gastrointestinal haemorrhage [None]
  - Haemoglobin decreased [None]
  - Chest pain [None]

NARRATIVE: CASE EVENT DATE: 20150518
